FAERS Safety Report 21987667 (Version 3)
Quarter: 2024Q2

REPORT INFORMATION
  Report Type: Spontaneous
  Country: US (occurrence: US)
  Receive Date: 20230214
  Receipt Date: 20240402
  Transmission Date: 20240716
  Serious: No
  Sender: FDA-Public Use
  Company Number: US-BIOGEN-2020BI00840465

PATIENT
  Sex: Female

DRUGS (1)
  1. TYSABRI [Suspect]
     Active Substance: NATALIZUMAB
     Indication: Multiple sclerosis
     Route: 050
     Dates: start: 20180504

REACTIONS (9)
  - Product dose omission issue [Unknown]
  - Dysgraphia [Unknown]
  - Cognitive disorder [Unknown]
  - Burning sensation [Unknown]
  - Migraine [Unknown]
  - Gait inability [Unknown]
  - Hypoaesthesia [Unknown]
  - Pain [Unknown]
  - Tremor [Unknown]
